FAERS Safety Report 15377699 (Version 2)
Quarter: 2018Q4

REPORT INFORMATION
  Report Type: Spontaneous
  Country: CN (occurrence: CN)
  Receive Date: 20180913
  Receipt Date: 20181016
  Transmission Date: 20190204
  Serious: No
  Sender: FDA-Public Use
  Company Number: CN-ABBVIE-18P-035-2484128-00

PATIENT
  Age: 40 Year
  Sex: Female

DRUGS (2)
  1. EUCALYPTOL LIMONENE PINENE [Concomitant]
     Indication: CHRONIC SINUSITIS
  2. KLACID [Suspect]
     Active Substance: CLARITHROMYCIN
     Indication: CHRONIC SINUSITIS
     Route: 048

REACTIONS (3)
  - Hyperhidrosis [Recovered/Resolved]
  - Amaurosis [Recovered/Resolved]
  - Abdominal pain [Recovered/Resolved]
